FAERS Safety Report 5750063-6 (Version None)
Quarter: 2008Q2

REPORT INFORMATION
  Report Type: 
  Country: None (occurrence: None)
  Receive Date: 20080527
  Receipt Date: 20080521
  Transmission Date: 20081010
  Serious: Yes (Other)
  Sender: FDA-Public Use
  Company Number: US-PFIZER INC-2008043631

PATIENT
  Sex: Male
  Weight: 83.4 kg

DRUGS (1)
  1. MARAVIROC [Suspect]
     Route: 048

REACTIONS (1)
  - RECTAL CANCER [None]
